FAERS Safety Report 10890541 (Version 3)
Quarter: 2015Q2

REPORT INFORMATION
  Report Type: Not Available
  Country: US (occurrence: US)
  Receive Date: 20150305
  Receipt Date: 20150615
  Transmission Date: 20150821
  Serious: Yes (Other)
  Sender: FDA-Public Use
  Company Number: US-LUPIN PHARMACEUTICALS INC.-E2B_00003246

PATIENT
  Age: 62 Year
  Sex: Female
  Weight: 68.1 kg

DRUGS (16)
  1. DULOXETINE DELAYED-RELEASE 30 MG CAPSULES USP [Suspect]
     Active Substance: DULOXETINE
     Dosage: CAPSULE WAS OPENED AND 3 OUT OF THE 6 PELLETS/BEADS WERE TAKEN
  2. ARICEPT [Concomitant]
     Active Substance: DONEPEZIL HYDROCHLORIDE
     Indication: PRODUCT USED FOR UNKNOWN INDICATION
  3. DULOXETINE DELAYED-RELEASE 20 MG CAPSULES USP [Suspect]
     Active Substance: DULOXETINE
     Indication: DEPRESSION
     Dates: start: 20150316
  4. SEROQUEL [Concomitant]
     Active Substance: QUETIAPINE FUMARATE
     Indication: PRODUCT USED FOR UNKNOWN INDICATION
  5. DULOXETINE DELAYED-RELEASE 30 MG CAPSULES USP [Suspect]
     Active Substance: DULOXETINE
     Indication: BIPOLAR DISORDER
     Dates: start: 20140923
  6. DULOXETINE DELAYED-RELEASE 30 MG CAPSULES USP [Suspect]
     Active Substance: DULOXETINE
     Dosage: CAPSULE WAS OPENED AND 2 PELLET/BEADS WERE TAKEN
  7. TRAZODONE [Concomitant]
     Active Substance: TRAZODONE HYDROCHLORIDE
     Indication: SLEEP DISORDER
  8. SYNTHROID [Concomitant]
     Active Substance: LEVOTHYROXINE SODIUM
     Indication: HYPOTHYROIDISM
  9. SYNTHROID [Concomitant]
     Active Substance: LEVOTHYROXINE SODIUM
  10. INDERAL [Concomitant]
     Active Substance: PROPRANOLOL HYDROCHLORIDE
     Indication: BLOOD PRESSURE
  11. CATAPRES [Concomitant]
     Active Substance: CLONIDINE HYDROCHLORIDE
     Indication: HYPERTENSION
  12. KLONOPIN [Concomitant]
     Active Substance: CLONAZEPAM
     Indication: PRODUCT USED FOR UNKNOWN INDICATION
  13. MIRAPEX [Concomitant]
     Active Substance: PRAMIPEXOLE DIHYDROCHLORIDE
     Indication: BIPOLAR DISORDER
  14. MIRAPEX [Concomitant]
     Active Substance: PRAMIPEXOLE DIHYDROCHLORIDE
     Indication: AFFECTIVE DISORDER
  15. SEROQUEL [Concomitant]
     Active Substance: QUETIAPINE FUMARATE
     Route: 065
  16. DULOXETINE DELAYED-RELEASE 30 MG CAPSULES USP [Suspect]
     Active Substance: DULOXETINE

REACTIONS (14)
  - Homicidal ideation [Recovered/Resolved]
  - Wrong technique in drug usage process [Unknown]
  - Anger [Recovered/Resolved]
  - Irritability [Recovered/Resolved]
  - Agitation [Recovered/Resolved]
  - Energy increased [Recovered/Resolved]
  - Increased appetite [Unknown]
  - Depression [Recovered/Resolved]
  - Drug administration error [Unknown]
  - Insomnia [Recovered/Resolved]
  - Weight increased [Unknown]
  - Hypomania [Not Recovered/Not Resolved]
  - Inappropriate schedule of drug administration [Unknown]
  - Blood creatinine increased [Not Recovered/Not Resolved]

NARRATIVE: CASE EVENT DATE: 20140923
